FAERS Safety Report 6516643-5 (Version None)
Quarter: 2009Q4

REPORT INFORMATION
  Report Type: 
  Country: None (occurrence: None)
  Receive Date: 20091223
  Receipt Date: 20091223
  Transmission Date: 20100525
  Serious: Yes (Other)
  Sender: FDA-Public Use
  Company Number: US-ROXANE LABORATORIES, INC.-2009-RO-01288RO

PATIENT
  Sex: Female

DRUGS (5)
  1. PREDNISONE [Suspect]
     Dosage: 100 MG
     Route: 048
     Dates: start: 20091001
  2. ACTOS [Suspect]
     Indication: DIABETES MELLITUS
     Dosage: 45 MG
     Route: 048
  3. RITUXAN [Concomitant]
     Indication: LYMPHOMA
     Dates: start: 20091001, end: 20091001
  4. RITUXAN [Concomitant]
  5. GLIMEPIRIDE [Concomitant]
     Indication: DIABETES MELLITUS
     Route: 048

REACTIONS (2)
  - BLOOD GLUCOSE INCREASED [None]
  - LYMPHOMA [None]
